FAERS Safety Report 14701930 (Version 4)
Quarter: 2018Q2

REPORT INFORMATION
  Report Type: Spontaneous
  Country: DE (occurrence: DE)
  Receive Date: 20180331
  Receipt Date: 20180521
  Transmission Date: 20180711
  Serious: Yes (Hospitalization)
  Sender: FDA-Public Use
  Company Number: DE-AUROBINDO-AUR-APL-2018-017996

PATIENT
  Age: 76 Year
  Sex: Female
  Weight: 81 kg

DRUGS (4)
  1. TEMSIROLIMUS [Suspect]
     Active Substance: TEMSIROLIMUS
     Indication: METASTATIC MALIGNANT MELANOMA
     Dosage: 25 MG, UNKNOWN
     Route: 042
     Dates: start: 20180131, end: 20180221
  2. ETORICOXIB [Suspect]
     Active Substance: ETORICOXIB
     Indication: METASTATIC MALIGNANT MELANOMA
     Route: 048
     Dates: start: 20180131, end: 20180223
  3. PIOGLITAZONE. [Suspect]
     Active Substance: PIOGLITAZONE
     Indication: METASTATIC MALIGNANT MELANOMA
     Dosage: 60 MG, UNKNOWN
     Route: 048
     Dates: start: 20180131, end: 20180223
  4. TROFOSFAMIDE [Suspect]
     Active Substance: TROFOSFAMIDE
     Indication: METASTATIC MALIGNANT MELANOMA
     Dosage: 150 MG, UNKNOWN
     Route: 048
     Dates: start: 20180131, end: 20180223

REACTIONS (1)
  - Urinary tract infection [Recovered/Resolved]

NARRATIVE: CASE EVENT DATE: 20180224
